FAERS Safety Report 4501057-X (Version None)
Quarter: 2004Q4

REPORT INFORMATION
  Report Type: 
  Country: None (occurrence: None)
  Receive Date: 20041115
  Receipt Date: 20041105
  Transmission Date: 20050328
  Serious: Yes (Other)
  Sender: FDA-Public Use
  Company Number: US-BRISTOL-MYERS SQUIBB COMPANY-12760336

PATIENT
  Age: 39 Year
  Sex: Male

DRUGS (4)
  1. SERZONE [Suspect]
     Route: 048
     Dates: start: 20000626, end: 20001220
  2. ALUMINUM HYDROXIDE AND MAGNESIUM TRISILICATE [Concomitant]
  3. VICODIN [Concomitant]
  4. MOTRIN [Concomitant]

REACTIONS (1)
  - HEPATITIS C [None]
